FAERS Safety Report 16114330 (Version 2)
Quarter: 2020Q1

REPORT INFORMATION
  Report Type: Spontaneous
  Country: US (occurrence: US)
  Receive Date: 20190325
  Receipt Date: 20200327
  Transmission Date: 20200409
  Serious: No
  Sender: FDA-Public Use
  Company Number: US-ALLERGAN-1904249US

PATIENT
  Sex: Female

DRUGS (2)
  1. UNSPECIFED THYROID MEDICATION [Concomitant]
     Indication: THYROID DISORDER
     Dosage: UNK
  2. LUMIGAN [Suspect]
     Active Substance: BIMATOPROST
     Indication: GLAUCOMA
     Dosage: UNK
     Route: 047

REACTIONS (3)
  - Incorrect dose administered [Unknown]
  - Product container issue [Unknown]
  - Photophobia [Unknown]
